FAERS Safety Report 4866294-3 (Version None)
Quarter: 2005Q4

REPORT INFORMATION
  Report Type: 
  Country: None (occurrence: None)
  Receive Date: 20051227
  Receipt Date: 20051114
  Transmission Date: 20060501
  Serious: Yes (Life-Threatening, Hospitalization)
  Sender: FDA-Public Use
  Company Number: DE-SANOFI-SYNTHELABO-F01200502406

PATIENT
  Sex: Male

DRUGS (9)
  1. OXALIPLATIN [Suspect]
     Indication: COLON CANCER
     Route: 042
     Dates: start: 20051010, end: 20051010
  2. FLUOROURACIL [Suspect]
     Indication: COLON CANCER
     Dosage: 720 MG 1 X PER 2 WEEKS
     Route: 042
     Dates: start: 20051010, end: 20051011
  3. LEUCOVORIN CALCIUM [Suspect]
     Indication: COLON CANCER
     Dosage: 360 MG 1 X PER 2 WEEK
     Route: 042
     Dates: start: 20051010, end: 20051010
  4. KEVATRIL [Concomitant]
     Dates: start: 20051010
  5. CALCIUM GLUCONATE [Concomitant]
     Dates: start: 20051010
  6. MAGNESIUM [Concomitant]
     Dates: start: 20051010
  7. FILGRASTIM [Concomitant]
     Dates: start: 20051010
  8. GASTROSIL [Concomitant]
     Dates: start: 20051010
  9. FRAXIPARIN [Concomitant]

REACTIONS (1)
  - MYOCARDIAL INFARCTION [None]
